FAERS Safety Report 5518709-5 (Version None)
Quarter: 2007Q4

REPORT INFORMATION
  Report Type: 
  Country: None (occurrence: None)
  Receive Date: 20071115
  Receipt Date: 20071106
  Transmission Date: 20080405
  Serious: Yes (Hospitalization)
  Sender: FDA-Public Use
  Company Number: JP-WYE-H01191007

PATIENT
  Sex: Female
  Weight: 47.6 kg

DRUGS (6)
  1. TEMSIROLIMUS [Suspect]
     Indication: RENAL CELL CARCINOMA STAGE UNSPECIFIED
     Route: 042
     Dates: start: 20070904, end: 20071101
  2. BETAMETHASONE [Concomitant]
     Indication: HYPERSENSITIVITY
     Dosage: DOSE AND FREQUENCY NOT PROVIDED
     Dates: start: 20070918
  3. PEFLOXACIN [Concomitant]
     Indication: PNEUMONIA
     Dosage: DOSE AND FREQUENCY NOT PROVIDED
     Dates: start: 20071030
  4. MAGNESIUM OXIDE [Concomitant]
     Indication: LAXATIVE SUPPORTIVE CARE
     Dosage: DOSE AND FREQUENCY NOT PROVIDED
     Dates: start: 20070201
  5. AMBROXOL HYDROCHLORIDE [Concomitant]
     Indication: PRODUCTIVE COUGH
     Dosage: DOSE AND FREQUENCY NOT PROVIDED
     Dates: start: 20071030
  6. PROCATEROL HCL [Concomitant]
     Dosage: DOSE AND FREQUENCY NOT PROVIDED
     Dates: start: 20071101

REACTIONS (3)
  - CONDITION AGGRAVATED [None]
  - COUGH [None]
  - PLEURAL EFFUSION [None]
